FAERS Safety Report 12154918 (Version 1)
Quarter: 2016Q1

REPORT INFORMATION
  Report Type: Spontaneous
  Country: US (occurrence: None)
  Receive Date: 20160304
  Receipt Date: 20160304
  Transmission Date: 20160526
  Serious: No
  Sender: FDA-Public Use
  Company Number: None

PATIENT
  Age: 66 Year
  Sex: Male

DRUGS (3)
  1. SOMATULINE AUTOGEL [Suspect]
     Active Substance: LANREOTIDE ACETATE
     Indication: GIGANTISM
     Route: 058
     Dates: start: 20100407
  2. SOMATULINE AUTOGEL [Suspect]
     Active Substance: LANREOTIDE ACETATE
     Indication: ACROMEGALY
     Route: 058
     Dates: start: 20100407
  3. SOMATULINE AUTOGEL [Suspect]
     Active Substance: LANREOTIDE ACETATE
     Indication: HYPOTHALAMO-PITUITARY DISORDER
     Route: 058
     Dates: start: 20100407

REACTIONS (5)
  - Post procedural complication [None]
  - Hyperhidrosis [None]
  - Asthenia [None]
  - Injection site reaction [None]
  - Hypoglycaemia [None]
